FAERS Safety Report 6698707-9 (Version None)
Quarter: 2010Q2

REPORT INFORMATION
  Report Type: 
  Country: None (occurrence: None)
  Receive Date: 20100427
  Receipt Date: 20091111
  Transmission Date: 20101027
  Serious: No
  Sender: FDA-Public Use
  Company Number: US-ASTRAZENECA-2009SE25902

PATIENT
  Age: 39 Year
  Sex: Female
  Weight: 54.4 kg

DRUGS (2)
  1. ZOMIG [Suspect]
     Indication: MIGRAINE
     Route: 048
     Dates: start: 20000101, end: 20090901
  2. ZOMIG [Suspect]
     Route: 048
     Dates: start: 20090901

REACTIONS (4)
  - ACNE [None]
  - EYELID OEDEMA [None]
  - FIBROMYALGIA [None]
  - THROAT TIGHTNESS [None]
